FAERS Safety Report 17510227 (Version 1)
Quarter: 2020Q1

REPORT INFORMATION
  Report Type: Spontaneous
  Country: US (occurrence: US)
  Receive Date: 20200306
  Receipt Date: 20200306
  Transmission Date: 20200409
  Serious: No
  Sender: FDA-Public Use
  Company Number: US-PFIZER INC-2020100508

PATIENT
  Age: 73 Year
  Sex: Male
  Weight: 84.37 kg

DRUGS (1)
  1. SILDENAFIL CITRATE. [Suspect]
     Active Substance: SILDENAFIL CITRATE
     Indication: ERECTILE DYSFUNCTION
     Dosage: 100 MG, AS NEEDED [100 MG TABLETS, 1 TABLET BY MOUTH AS NEEDED FOR A MAX OF 1 TABLET PER DAY]
     Route: 048

REACTIONS (1)
  - Drug ineffective [Unknown]
